FAERS Safety Report 20816967 (Version 2)
Quarter: 2022Q2

REPORT INFORMATION
  Report Type: Other
  Country: ES (occurrence: ES)
  Receive Date: 20220512
  Receipt Date: 20220613
  Transmission Date: 20220720
  Serious: Yes (Other)
  Sender: FDA-Public Use
  Company Number: ES-CELLTRION INC.-2022ES006136

PATIENT

DRUGS (8)
  1. RITUXIMAB [Suspect]
     Active Substance: RITUXIMAB
     Indication: Product used for unknown indication
     Dosage: 1000 MG, EVERY 7 DAYS
     Route: 065
     Dates: start: 201901
  2. RITUXIMAB [Suspect]
     Active Substance: RITUXIMAB
     Dosage: 500 MG
     Route: 065
     Dates: start: 202104, end: 202110
  3. RITUXIMAB [Suspect]
     Active Substance: RITUXIMAB
     Dosage: 1000 MG
     Route: 065
     Dates: start: 201911, end: 202007
  4. AVONEX [Suspect]
     Active Substance: INTERFERON BETA-1A
     Indication: Multiple sclerosis
     Dosage: UNK
     Route: 030
     Dates: start: 2008, end: 2009
  5. FINGOLIMOD [Suspect]
     Active Substance: FINGOLIMOD
     Indication: Product used for unknown indication
     Dosage: UNK
     Route: 065
     Dates: start: 201806
  6. FINGOLIMOD [Suspect]
     Active Substance: FINGOLIMOD
     Dosage: UNK
     Route: 065
     Dates: start: 201302, end: 201803
  7. TYSABRI [Suspect]
     Active Substance: NATALIZUMAB
     Indication: Multiple sclerosis
     Dosage: UNK
     Route: 065
     Dates: start: 2009, end: 2012
  8. RAMIPRIL [Concomitant]
     Active Substance: RAMIPRIL
     Dosage: 5 MG

REACTIONS (3)
  - Relapsing multiple sclerosis [Unknown]
  - Lung adenocarcinoma [Unknown]
  - Lung neoplasm [Recovered/Resolved]

NARRATIVE: CASE EVENT DATE: 20180301
